APPROVED DRUG PRODUCT: KETOCONAZOLE
Active Ingredient: KETOCONAZOLE
Strength: 2%
Dosage Form/Route: CREAM;TOPICAL
Application: A215185 | Product #001
Applicant: PADAGIS US LLC
Approved: Nov 17, 2021 | RLD: No | RS: No | Type: DISCN